FAERS Safety Report 5179259-1 (Version None)
Quarter: 2006Q4

REPORT INFORMATION
  Report Type: 
  Country: None (occurrence: None)
  Receive Date: 20061211
  Receipt Date: 20061205
  Transmission Date: 20070319
  Serious: Yes (Death, Other)
  Sender: FDA-Public Use
  Company Number: 148053USA

PATIENT
  Age: 63 Year
  Sex: Female

DRUGS (11)
  1. COPAXONE [Suspect]
     Indication: MULTIPLE SCLEROSIS
     Dosage: 20 MG (20 MG, 1 IN 1 D), SUBCUTANEOUS
     Route: 058
  2. LISINOPRIL [Concomitant]
  3. CITALOPRAM HYDROBROMIDE [Concomitant]
  4. OMEPRAZOLE [Concomitant]
  5. LOVASTATIN [Concomitant]
  6. LEVOTHYROXINE SODIUM [Concomitant]
  7. BACLOFEN [Concomitant]
  8. FLUTICASONE PROPIONATE [Concomitant]
  9. FEXOFENADINE [Concomitant]
  10. OXYBUTYNIN CHLORIDE [Concomitant]
  11. BACTRIM [Concomitant]

REACTIONS (6)
  - CEREBROVASCULAR ACCIDENT [None]
  - CONVULSION [None]
  - MENTAL STATUS CHANGES [None]
  - MYOCARDIAL INFARCTION [None]
  - SUDDEN DEATH [None]
  - URINARY TRACT INFECTION [None]
